FAERS Safety Report 8385234-6 (Version None)
Quarter: 2012Q2

REPORT INFORMATION
  Report Type: 
  Country: None (occurrence: None)
  Receive Date: 20120525
  Receipt Date: 20120518
  Transmission Date: 20120825
  Serious: Yes (Hospitalization)
  Sender: FDA-Public Use
  Company Number: DE-BIOGENIDEC-2012BI017628

PATIENT
  Age: 38 Year
  Sex: Female

DRUGS (4)
  1. IBUPROFEN [Concomitant]
     Indication: MULTIPLE SCLEROSIS
     Dates: start: 20050101, end: 20120501
  2. AVONEX [Suspect]
     Indication: MULTIPLE SCLEROSIS
     Route: 030
     Dates: start: 20050801, end: 20120518
  3. METOPROLOLSUCCINAT [Concomitant]
     Indication: HYPERTENSION
     Dates: start: 20100101
  4. CONTRACEPTIVE (NOS) [Concomitant]
     Indication: CONTRACEPTION

REACTIONS (4)
  - ASPARTATE AMINOTRANSFERASE INCREASED [None]
  - GAMMA-GLUTAMYLTRANSFERASE INCREASED [None]
  - DRUG-INDUCED LIVER INJURY [None]
  - ALANINE AMINOTRANSFERASE INCREASED [None]
